FAERS Safety Report 5161688-3 (Version None)
Quarter: 2006Q4

REPORT INFORMATION
  Report Type: 
  Country: None (occurrence: None)
  Receive Date: 20061130
  Receipt Date: 20060620
  Transmission Date: 20070319
  Serious: No
  Sender: FDA-Public Use
  Company Number: US-BRISTOL-MYERS SQUIBB COMPANY-13417928

PATIENT
  Age: 30 Year
  Sex: Female
  Weight: 48 kg

DRUGS (3)
  1. GLUCOPHAGE XR [Suspect]
     Indication: POLYCYSTIC OVARIES
  2. LEVOTHYROXINE SODIUM [Concomitant]
  3. PRENATAL VITAMINS [Concomitant]

REACTIONS (1)
  - STOMACH DISCOMFORT [None]
